FAERS Safety Report 6979231-2 (Version None)
Quarter: 2010Q3

REPORT INFORMATION
  Report Type: 
  Country: None (occurrence: None)
  Receive Date: 20100913
  Receipt Date: 20100903
  Transmission Date: 20110219
  Serious: Yes (Hospitalization)
  Sender: FDA-Public Use
  Company Number: JP-JNJFOC-20100903165

PATIENT
  Age: 27 Year
  Sex: Male

DRUGS (5)
  1. CRAVIT [Suspect]
     Indication: ENTERITIS INFECTIOUS
     Route: 048
  2. CRAVIT [Suspect]
     Indication: ABDOMINAL PAIN
     Route: 048
  3. BIOFERMIN R [Concomitant]
     Indication: PRODUCT USED FOR UNKNOWN INDICATION
     Route: 065
  4. AMLODIPINE BESYLATE [Concomitant]
     Indication: PRODUCT USED FOR UNKNOWN INDICATION
     Route: 065
  5. NATRIX [Concomitant]
     Indication: PRODUCT USED FOR UNKNOWN INDICATION
     Route: 065

REACTIONS (2)
  - AGRANULOCYTOSIS [None]
  - PNEUMONIA [None]
